FAERS Safety Report 7804510-6 (Version None)
Quarter: 2011Q4

REPORT INFORMATION
  Report Type: 
  Country: None (occurrence: None)
  Receive Date: 20111010
  Receipt Date: 20110930
  Transmission Date: 20120403
  Serious: Yes (Hospitalization, Other)
  Sender: FDA-Public Use
  Company Number: PHHY2011NZ81484

PATIENT
  Sex: Male

DRUGS (2)
  1. CLOZAPINE [Suspect]
     Indication: SCHIZOPHRENIA
     Dosage: 250 MG, QD
     Dates: start: 20110711, end: 20110724
  2. DIAZEPAM [Concomitant]
     Indication: SLEEP DISORDER
     Dosage: 5 MG, NOCTE
     Dates: start: 20091013

REACTIONS (12)
  - NIGHT SWEATS [None]
  - TACHYCARDIA [None]
  - BLOOD PRESSURE INCREASED [None]
  - TROPONIN INCREASED [None]
  - C-REACTIVE PROTEIN INCREASED [None]
  - MYOCARDITIS [None]
  - FATIGUE [None]
  - DIZZINESS [None]
  - BACTERIAL INFECTION [None]
  - ALANINE AMINOTRANSFERASE INCREASED [None]
  - GAMMA-GLUTAMYLTRANSFERASE INCREASED [None]
  - PYREXIA [None]
